FAERS Safety Report 21236199 (Version 2)
Quarter: 2022Q3

REPORT INFORMATION
  Report Type: Other
  Country: HN (occurrence: HN)
  Receive Date: 20220822
  Receipt Date: 20220902
  Transmission Date: 20221027
  Serious: Yes (Death, Other)
  Sender: FDA-Public Use
  Company Number: HN-TOLMAR, INC.-22HN035705

PATIENT
  Age: 66 Year
  Sex: Male

DRUGS (6)
  1. ELIGARD [Suspect]
     Active Substance: LEUPROLIDE ACETATE
     Indication: Hormone-refractory prostate cancer
     Dosage: 45 MILLIGRAM, Q 6 MONTH
     Route: 058
     Dates: start: 202203
  2. ELIGARD [Suspect]
     Active Substance: LEUPROLIDE ACETATE
     Dosage: 45 MILLIGRAM, Q 6 MONTH
     Route: 058
     Dates: start: 202102
  3. ELIGARD [Suspect]
     Active Substance: LEUPROLIDE ACETATE
     Dosage: 45 MILLIGRAM, Q 6 MONTH
     Route: 058
     Dates: start: 20190225
  4. XTANDI [Suspect]
     Active Substance: ENZALUTAMIDE
     Indication: Hormone-refractory prostate cancer
     Dosage: 160 MILLIGRAM, QD
     Route: 048
     Dates: start: 20220210
  5. XTANDI [Suspect]
     Active Substance: ENZALUTAMIDE
     Dosage: 160 MILLIGRAM, QD
     Route: 048
     Dates: start: 20220708
  6. OXYCODONE [Concomitant]
     Active Substance: OXYCODONE
     Indication: Product used for unknown indication
     Dosage: 40 MILLIGRAM, BID

REACTIONS (2)
  - Injury [Fatal]
  - Fall [Unknown]

NARRATIVE: CASE EVENT DATE: 20220709
